FAERS Safety Report 11113053 (Version 2)
Quarter: 2015Q2

REPORT INFORMATION
  Report Type: Spontaneous
  Country: JP (occurrence: JP)
  Receive Date: 20150514
  Receipt Date: 20150518
  Transmission Date: 20150821
  Serious: Yes (Other)
  Sender: FDA-Public Use
  Company Number: JP-PFIZER INC-2015160253

PATIENT
  Sex: Female

DRUGS (1)
  1. SOLANAX [Suspect]
     Active Substance: ALPRAZOLAM
     Dosage: UNK, AS NEEDED
     Route: 048

REACTIONS (11)
  - Hearing impaired [Recovered/Resolved]
  - Anaemia [Unknown]
  - Fall [Unknown]
  - Abdominal pain [Unknown]
  - Visual impairment [Not Recovered/Not Resolved]
  - Depressed level of consciousness [Recovered/Resolved]
  - Vertigo [Unknown]
  - Weight decreased [Unknown]
  - Dysaesthesia [Unknown]
  - Skin discolouration [Unknown]
  - Nausea [Unknown]
